FAERS Safety Report 20193726 (Version 1)
Quarter: 2021Q4

REPORT INFORMATION
  Report Type: Spontaneous
  Country: AU (occurrence: AU)
  Receive Date: 20211216
  Receipt Date: 20211216
  Transmission Date: 20220303
  Serious: Yes (Other)
  Sender: FDA-Public Use
  Company Number: AU-SAMSUNG BIOEPIS-SB-2021-29100

PATIENT
  Age: 47 Year
  Sex: Female

DRUGS (1)
  1. INFLIXIMAB [Suspect]
     Active Substance: INFLIXIMAB
     Indication: Rheumatoid arthritis
     Route: 042
     Dates: start: 20210817

REACTIONS (5)
  - Kidney infection [Recovered/Resolved]
  - Rheumatoid arthritis [Recovering/Resolving]
  - Skin ulcer [Not Recovered/Not Resolved]
  - Off label use [Unknown]
  - Product use issue [Unknown]
